FAERS Safety Report 4958422-6 (Version None)
Quarter: 2006Q1

REPORT INFORMATION
  Report Type: 
  Country: None (occurrence: None)
  Receive Date: 20060330
  Receipt Date: 20060323
  Transmission Date: 20060701
  Serious: Yes (Hospitalization)
  Sender: FDA-Public Use
  Company Number: AU-NOVOPROD-251939

PATIENT
  Age: 27 Year
  Sex: Female

DRUGS (2)
  1. PROTAPHANE [Suspect]
     Indication: DRUG USE FOR UNKNOWN INDICATION
  2. ACTRAPID [Suspect]
     Indication: DRUG USE FOR UNKNOWN INDICATION

REACTIONS (1)
  - SEPSIS [None]
